FAERS Safety Report 12309507 (Version 2)
Quarter: 2016Q2

REPORT INFORMATION
  Report Type: Spontaneous
  Country: US (occurrence: US)
  Receive Date: 20160427
  Receipt Date: 20160512
  Transmission Date: 20160815
  Serious: No
  Sender: FDA-Public Use
  Company Number: US-PFIZER INC-2016229908

PATIENT
  Age: 61 Year
  Sex: Female
  Weight: 97.52 kg

DRUGS (2)
  1. NICOTROL [Suspect]
     Active Substance: NICOTINE
     Dosage: 4 CARTRIDGES PER DAY
  2. NICOTROL [Suspect]
     Active Substance: NICOTINE
     Indication: SMOKING CESSATION THERAPY
     Dosage: 10 MG, UNK

REACTIONS (5)
  - Tinnitus [Unknown]
  - Eye pruritus [Unknown]
  - Rhinorrhoea [Unknown]
  - Ear pruritus [Unknown]
  - Ocular hyperaemia [Unknown]

NARRATIVE: CASE EVENT DATE: 201604
